FAERS Safety Report 18352473 (Version 3)
Quarter: 2020Q4

REPORT INFORMATION
  Report Type: Spontaneous
  Country: IT (occurrence: IT)
  Receive Date: 20201006
  Receipt Date: 20201113
  Transmission Date: 20210114
  Serious: Yes (Other)
  Sender: FDA-Public Use
  Company Number: IT-SEATTLE GENETICS-2020SGN04433

PATIENT
  Age: 76 Year
  Sex: Male

DRUGS (4)
  1. HYDROCORTISONE. [Concomitant]
     Active Substance: HYDROCORTISONE
     Indication: LYMPHOMA
     Dosage: 100 MILLIGRAM
     Route: 065
     Dates: start: 20170301, end: 20170614
  2. NIVOLUMAB [Suspect]
     Active Substance: NIVOLUMAB
     Indication: LYMPHOMA
     Dosage: 231 MILLIGRAM
     Route: 065
     Dates: start: 20180426
  3. ADCETRIS [Suspect]
     Active Substance: BRENTUXIMAB VEDOTIN
     Indication: LYMPHOMA
     Dosage: 144 MILLIGRAM
     Route: 065
     Dates: start: 20170301, end: 20170614
  4. CHLORPHENAMINE [Concomitant]
     Active Substance: CHLORPHENIRAMINE MALEATE
     Dosage: 10 MILLIGRAM
     Route: 042
     Dates: start: 20170301, end: 20170614

REACTIONS (1)
  - Ventricular dysfunction [Unknown]

NARRATIVE: CASE EVENT DATE: 20200905
